FAERS Safety Report 9731216 (Version 3)
Quarter: 2014Q1

REPORT INFORMATION
  Report Type: Spontaneous
  Country: US (occurrence: US)
  Receive Date: 20131203
  Receipt Date: 20140321
  Transmission Date: 20141002
  Serious: Yes (Other)
  Sender: FDA-Public Use
  Company Number: US-BAYER-2013-144763

PATIENT
  Age: 20 Year
  Sex: Female

DRUGS (2)
  1. MIRENA [Suspect]
     Indication: CONTRACEPTION
     Dosage: 20 MCG/24HR, CONT
     Route: 015
     Dates: start: 2003
  2. MIRENA [Suspect]
     Indication: CONTRACEPTION
     Dosage: 20 MCG/24HR, CONT
     Route: 015
     Dates: start: 201305

REACTIONS (5)
  - Device dislocation [Not Recovered/Not Resolved]
  - Pregnancy with contraceptive device [Recovered/Resolved]
  - Drug ineffective [None]
  - Pelvic pain [None]
  - Genital haemorrhage [None]
